FAERS Safety Report 12014584 (Version 1)
Quarter: 2016Q1

REPORT INFORMATION
  Report Type: Spontaneous
  Country: US (occurrence: US)
  Receive Date: 20160205
  Receipt Date: 20160205
  Transmission Date: 20160526
  Serious: Yes (Hospitalization, Other)
  Sender: FDA-Public Use
  Company Number: US-NOVOPROD-479218

PATIENT
  Age: 62 Year
  Sex: Female
  Weight: 82.99 kg

DRUGS (3)
  1. LEVEMIR [Suspect]
     Active Substance: INSULIN DETEMIR
     Indication: TYPE 2 DIABETES MELLITUS
     Dosage: 28 U, QD
     Route: 058
     Dates: start: 2014, end: 20150615
  2. LEVEMIR [Suspect]
     Active Substance: INSULIN DETEMIR
     Dosage: 7 U, QD
     Route: 058
     Dates: start: 201512
  3. NOVOLOG [Concomitant]
     Active Substance: INSULIN ASPART
     Indication: TYPE 2 DIABETES MELLITUS
     Dosage: 7 TO 10 U, TID
     Route: 058

REACTIONS (3)
  - Treatment noncompliance [Not Recovered/Not Resolved]
  - Seizure [Recovered/Resolved]
  - Cerebrovascular accident [Recovered/Resolved]

NARRATIVE: CASE EVENT DATE: 2015
